FAERS Safety Report 26140402 (Version 1)
Quarter: 2025Q4

REPORT INFORMATION
  Report Type: Spontaneous
  Country: US (occurrence: US)
  Receive Date: 20251210
  Receipt Date: 20251210
  Transmission Date: 20260117
  Serious: No
  Sender: LUNDBECK
  Company Number: US-LUNDBECK-DKLU4022148

PATIENT
  Age: 49 Year
  Sex: Female
  Weight: 85.9 kg

DRUGS (1)
  1. VYEPTI [Suspect]
     Active Substance: EPTINEZUMAB-JJMR
     Indication: Product used for unknown indication
     Dosage: 300 MILLIGRAM
     Route: 041
     Dates: start: 20251119, end: 20251119

REACTIONS (7)
  - Sneezing [Recovering/Resolving]
  - Rhinorrhoea [Recovering/Resolving]
  - Pain in jaw [Recovering/Resolving]
  - Paraesthesia oral [Recovering/Resolving]
  - Blood pressure increased [Recovering/Resolving]
  - Paraesthesia [Recovering/Resolving]
  - Flushing [Recovering/Resolving]
